FAERS Safety Report 7488525-6 (Version None)
Quarter: 2011Q2

REPORT INFORMATION
  Report Type: 
  Country: None (occurrence: None)
  Receive Date: 20110518
  Receipt Date: 20110511
  Transmission Date: 20111010
  Serious: Yes (Hospitalization, Other)
  Sender: FDA-Public Use
  Company Number: JP-MERCK-1007USA00465

PATIENT
  Age: 61 Year
  Sex: Male

DRUGS (5)
  1. MICARDIS [Concomitant]
     Indication: HYPERTENSION
     Route: 048
     Dates: start: 20071107
  2. JANUVIA [Suspect]
     Indication: DIABETES MELLITUS
     Route: 048
     Dates: start: 20100512, end: 20100621
  3. PLETAL [Concomitant]
     Indication: CEREBRAL INFARCTION
     Route: 048
     Dates: start: 20021111
  4. AMARYL [Concomitant]
     Indication: DIABETES MELLITUS
     Route: 048
     Dates: start: 20100512, end: 20100621
  5. MEVAN [Concomitant]
     Indication: DYSLIPIDAEMIA
     Route: 048
     Dates: start: 20091210

REACTIONS (3)
  - C-REACTIVE PROTEIN INCREASED [None]
  - PYREXIA [None]
  - MALAISE [None]
